FAERS Safety Report 17105713 (Version 1)
Quarter: 2019Q4

REPORT INFORMATION
  Report Type: Spontaneous
  Country: ES (occurrence: ES)
  Receive Date: 20191203
  Receipt Date: 20191203
  Transmission Date: 20200122
  Serious: Yes (Hospitalization)
  Sender: FDA-Public Use
  Company Number: ES-TEVA-2019-ES-1144983

PATIENT
  Age: 84 Year
  Sex: Female

DRUGS (6)
  1. PREVENCOR 20 MG COMPRIMIDOS RECUBIERTOS CON PELICULA, 28 COMPRIMIDOS [Concomitant]
     Indication: HYPERLIPIDAEMIA
     Dosage: 20 MG PER DAY
     Route: 048
     Dates: start: 20100624
  2. TORASEMIDA 10 MG COMPRIMIDO [Concomitant]
     Indication: ATRIAL FIBRILLATION
     Dosage: D (10 MG PER DAY)
     Route: 048
     Dates: start: 20170429
  3. BISOPROLOL 10 MG COMPRIMIDO [Concomitant]
     Indication: ATRIAL FIBRILLATION
     Dosage: 2.5 MG PER DAY
     Route: 048
     Dates: start: 20170429
  4. AMOXICILINA/ACIDO CLAVULANICO 500 MG/125 MG COMPRIMIDO [Suspect]
     Active Substance: AMOXICILLIN\CLAVULANATE POTASSIUM
     Indication: DIVERTICULUM
     Dosage: 500/125 MG EVERY 8 HOURS
     Route: 048
     Dates: start: 20190128, end: 20190129
  5. TRAZODONA 100 MG COMPRIMIDO [Concomitant]
     Indication: INSOMNIA
     Dosage: 100 MG PER DAY
     Route: 048
     Dates: start: 20140211
  6. FDG SCAN [18 F ], 260 MBQ/ML SOLUCION INYECTABLE, 20 ML [Concomitant]
     Active Substance: FLUDEOXYGLUCOSE F-18
     Indication: ANAEMIA
     Dosage: 100 MG PER DAY
     Route: 048
     Dates: start: 20161203

REACTIONS (2)
  - Urticaria [Recovered/Resolved]
  - Rash pruritic [Recovered/Resolved]

NARRATIVE: CASE EVENT DATE: 20190128
